FAERS Safety Report 19515338 (Version 2)
Quarter: 2021Q3

REPORT INFORMATION
  Report Type: Spontaneous
  Country: US (occurrence: US)
  Receive Date: 20210709
  Receipt Date: 20210716
  Transmission Date: 20211014
  Serious: Yes (Other)
  Sender: FDA-Public Use
  Company Number: US-ALLERGAN-2124858US

PATIENT
  Sex: Female

DRUGS (3)
  1. REFRESH PLUS [Suspect]
     Active Substance: CARBOXYMETHYLCELLULOSE SODIUM
     Indication: DRY EYE
     Dosage: 1?2 DROPS MORE THAN 10 TIMES PER DAY
     Route: 047
  2. RESTASIS [Concomitant]
     Active Substance: CYCLOSPORINE
     Indication: DRY EYE
     Dosage: 1 GTT
     Dates: start: 20210701
  3. OTHER DROPS INTO (LEFT) EYE [Concomitant]

REACTIONS (4)
  - Eye pain [Not Recovered/Not Resolved]
  - Therapeutic response decreased [Unknown]
  - Product packaging quantity issue [Unknown]
  - Cataract [Recovered/Resolved]
